FAERS Safety Report 9957363 (Version 1)
Quarter: 2014Q1

REPORT INFORMATION
  Report Type: Report from Study
  Country: US (occurrence: US)
  Receive Date: 20140304
  Receipt Date: 20140304
  Transmission Date: 20141002
  Serious: No
  Sender: FDA-Public Use
  Company Number: US-ABBVIE-13P-163-1096901-00

PATIENT
  Age: 40 Year
  Sex: Female

DRUGS (3)
  1. HUMIRA [Suspect]
     Indication: COLITIS ULCERATIVE
     Dates: start: 20130323
  2. HUMIRA [Suspect]
     Dates: start: 20130504
  3. ADVAIR [Concomitant]
     Indication: ASTHMA

REACTIONS (1)
  - Colitis [Recovering/Resolving]
